FAERS Safety Report 15631620 (Version 4)
Quarter: 2019Q1

REPORT INFORMATION
  Report Type: Spontaneous
  Country: US (occurrence: US)
  Receive Date: 20181119
  Receipt Date: 20190130
  Transmission Date: 20190417
  Serious: Yes (Other)
  Sender: FDA-Public Use
  Company Number: US-JNJFOC-20181112891

PATIENT
  Age: 16 Year
  Sex: Female

DRUGS (6)
  1. TYLENOL 8HR [Suspect]
     Active Substance: ACETAMINOPHEN
     Indication: MIGRAINE
     Dosage: 50 TO 100 MG TWICE A DAY
     Route: 048
     Dates: start: 20070623, end: 200706
  2. TYLENOL 8HR [Suspect]
     Active Substance: ACETAMINOPHEN
     Indication: MIGRAINE
     Route: 048
     Dates: start: 2002
  3. TYLENOL 8HR [Suspect]
     Active Substance: ACETAMINOPHEN
     Indication: HEADACHE
     Dosage: 50 TO 100 MG TWICE A DAY
     Route: 048
     Dates: start: 20070623, end: 200706
  4. TYLENOL 8HR [Suspect]
     Active Substance: ACETAMINOPHEN
     Indication: HEADACHE
     Route: 048
     Dates: start: 2002
  5. TYLENOL 8HR [Suspect]
     Active Substance: ACETAMINOPHEN
     Indication: HEADACHE
     Route: 048
     Dates: start: 20030416, end: 20050416
  6. TYLENOL 8HR [Suspect]
     Active Substance: ACETAMINOPHEN
     Indication: MIGRAINE
     Route: 048
     Dates: start: 20030416, end: 20050416

REACTIONS (8)
  - Dyspnoea [Unknown]
  - Personality change [Recovered/Resolved]
  - Drug hypersensitivity [Unknown]
  - Incorrect dose administered [Unknown]
  - Suicidal ideation [Unknown]
  - Heart rate increased [Recovered/Resolved]
  - Anger [Unknown]
  - Homicidal ideation [Unknown]

NARRATIVE: CASE EVENT DATE: 2002
